FAERS Safety Report 18337781 (Version 2)
Quarter: 2021Q1

REPORT INFORMATION
  Report Type: Report from Study
  Country: US (occurrence: US)
  Receive Date: 20201002
  Receipt Date: 20210325
  Transmission Date: 20210419
  Serious: Yes (Hospitalization, Other)
  Sender: FDA-Public Use
  Company Number: NVSC2020US262682

PATIENT
  Sex: Female

DRUGS (2)
  1. GILENYA [Suspect]
     Active Substance: FINGOLIMOD HYDROCHLORIDE
     Indication: MULTIPLE SCLEROSIS
     Dosage: 0.5 MG, QD
     Route: 048
  2. LIDOCAINE. [Concomitant]
     Active Substance: LIDOCAINE
     Indication: SLEEP DISORDER
     Dosage: UNK
     Route: 065

REACTIONS (13)
  - Chest pain [Unknown]
  - Multiple sclerosis [Unknown]
  - Fatigue [Unknown]
  - Paraesthesia [Unknown]
  - Back pain [Unknown]
  - Pain in extremity [Unknown]
  - Insomnia [Unknown]
  - Hypoaesthesia [Unknown]
  - Asthenia [Unknown]
  - Pain [Unknown]
  - Muscular weakness [Unknown]
  - Arthritis [Unknown]
  - Raynaud^s phenomenon [Unknown]
